FAERS Safety Report 6665247-2 (Version None)
Quarter: 2010Q2

REPORT INFORMATION
  Report Type: 
  Country: None (occurrence: None)
  Receive Date: 20100402
  Receipt Date: 20100324
  Transmission Date: 20101027
  Serious: Yes (Hospitalization)
  Sender: FDA-Public Use
  Company Number: US-ASTRAZENECA-2010SE13003

PATIENT
  Sex: Female

DRUGS (8)
  1. PRILOSEC [Suspect]
     Indication: EROSIVE OESOPHAGITIS
     Route: 048
     Dates: start: 19900101
  2. PRILOSEC [Suspect]
     Indication: GASTROOESOPHAGEAL REFLUX DISEASE
     Route: 048
     Dates: start: 19900101
  3. PRILOSEC [Suspect]
     Route: 048
  4. PRILOSEC [Suspect]
     Route: 048
  5. PRILOSEC [Suspect]
     Route: 048
  6. PRILOSEC [Suspect]
     Route: 048
  7. ADVAIR DISKUS 100/50 [Suspect]
     Route: 055
  8. ADVAIR DISKUS 100/50 [Suspect]
     Route: 055

REACTIONS (3)
  - ATRIAL FIBRILLATION [None]
  - DYSPHAGIA [None]
  - OESOPHAGEAL PAIN [None]
